FAERS Safety Report 8808132 (Version 2)
Quarter: 2012Q4

REPORT INFORMATION
  Report Type: 
  Country: ID (occurrence: ID)
  Receive Date: 20120925
  Receipt Date: 20121023
  Transmission Date: 20130627
  Serious: Yes (Death, Other)
  Sender: FDA-Public Use
  Company Number: ID-ROCHE-1122955

PATIENT
  Age: 42 Year
  Sex: Male
  Weight: 74 kg

DRUGS (7)
  1. RITUXIMAB [Suspect]
     Indication: LYMPHOMA
     Dosage: 1 cycle
     Route: 041
     Dates: start: 20090914, end: 20090914
  2. CYCLOPHOSPHAMIDE [Suspect]
     Indication: LYMPHOMA
     Route: 042
     Dates: end: 20090914
  3. DOXORUBICINE [Suspect]
     Indication: LYMPHOMA
     Route: 042
     Dates: end: 20090914
  4. VINCRISTINE [Suspect]
     Indication: LYMPHOMA
     Dosage: 1x
     Route: 042
     Dates: end: 20090914
  5. PREDNISOLONE [Suspect]
     Indication: LYMPHOMA
     Route: 048
     Dates: end: 20090918
  6. OMEPRAZOLE [Concomitant]
     Indication: HAEMATEMESIS
     Route: 042
     Dates: start: 20091006
  7. OMEPRAZOLE [Concomitant]
     Indication: MELAENA

REACTIONS (3)
  - Acute hepatic failure [Fatal]
  - Hepatitis fulminant [Fatal]
  - Hepatitis B [Unknown]
